FAERS Safety Report 9608571 (Version 1)
Quarter: 2013Q4

REPORT INFORMATION
  Report Type: Spontaneous
  Country: US (occurrence: US)
  Receive Date: 20131009
  Receipt Date: 20131009
  Transmission Date: 20140711
  Serious: No
  Sender: FDA-Public Use
  Company Number: US-009507513-1310USA003714

PATIENT
  Sex: Female

DRUGS (3)
  1. LOTRIMIN AF RINGWORM CREAM [Suspect]
     Indication: TINEA INFECTION
     Dosage: UNK, UNKNOWN
     Route: 061
  2. LOTRIMIN AF RINGWORM CREAM [Suspect]
     Indication: PRURITUS
  3. LOTRIMIN AF RINGWORM CREAM [Suspect]
     Indication: ERYTHEMA

REACTIONS (2)
  - Vulvovaginal pruritus [Not Recovered/Not Resolved]
  - Drug effect decreased [Unknown]
